FAERS Safety Report 5894761-2 (Version None)
Quarter: 2008Q3

REPORT INFORMATION
  Report Type: 
  Country: None (occurrence: None)
  Receive Date: 20080924
  Receipt Date: 20080728
  Transmission Date: 20090109
  Serious: Yes (Other)
  Sender: FDA-Public Use
  Company Number: US-ASTRAZENECA-2008UW08491

PATIENT
  Age: 3146 Day
  Sex: Male
  Weight: 27.7 kg

DRUGS (4)
  1. SEROQUEL [Suspect]
     Indication: AGITATION
     Route: 048
     Dates: start: 20070911, end: 20080418
  2. SEROQUEL [Suspect]
     Indication: BIPOLAR DISORDER
     Route: 048
     Dates: start: 20070911, end: 20080418
  3. DEPAKOTE [Concomitant]
     Indication: BIPOLAR DISORDER
  4. CONCERTA [Concomitant]
     Indication: ATTENTION DEFICIT/HYPERACTIVITY DISORDER

REACTIONS (1)
  - TARDIVE DYSKINESIA [None]
